FAERS Safety Report 5133395-4 (Version None)
Quarter: 2006Q4

REPORT INFORMATION
  Report Type: 
  Country: None (occurrence: None)
  Receive Date: 20061020
  Receipt Date: 20061020
  Transmission Date: 20070319
  Serious: Yes (Other)
  Sender: FDA-Public Use
  Company Number: None

PATIENT
  Sex: Female
  Weight: 175.9956 kg

DRUGS (17)
  1. GAMMAGARD LIQUID [Suspect]
     Indication: IMMUNODEFICIENCY COMMON VARIABLE
     Dosage: 20 GMS / 200 ML. WEEKLY IV DRIP SEE IMAGE
     Route: 041
     Dates: start: 20060101
  2. GAMMAGARD LIQUID [Suspect]
  3. GAMMAGARD LIQUID [Suspect]
  4. GAMMAGARD LIQUID [Suspect]
  5. GAMMAGARD LIQUID [Suspect]
  6. GAMMAGARD LIQUID [Suspect]
  7. GAMMAGARD LIQUID [Suspect]
  8. GAMMAGARD LIQUID [Suspect]
  9. GAMMAGARD LIQUID [Suspect]
  10. GAMMAGARD LIQUID [Suspect]
  11. GAMMAGARD LIQUID [Suspect]
  12. GAMMAGARD LIQUID [Suspect]
  13. GAMMAGARD LIQUID [Suspect]
  14. GAMMAGARD LIQUID [Suspect]
  15. GAMMAGARD LIQUID [Suspect]
  16. GAMMAGARD LIQUID [Suspect]
  17. GAMMAGARD LIQUID [Suspect]

REACTIONS (4)
  - INCORRECT DOSE ADMINISTERED [None]
  - PHARMACEUTICAL PRODUCT COMPLAINT [None]
  - PSEUDOMONAS INFECTION [None]
  - TRACHEOBRONCHITIS [None]
